FAERS Safety Report 13139229 (Version 1)
Quarter: 2017Q1

REPORT INFORMATION
  Report Type: Spontaneous
  Country: FR (occurrence: FR)
  Receive Date: 20170123
  Receipt Date: 20170123
  Transmission Date: 20170428
  Serious: Yes (Death, Hospitalization)
  Sender: FDA-Public Use
  Company Number: FR-PFIZER INC-2017026834

PATIENT
  Age: 62 Year
  Sex: Male

DRUGS (1)
  1. CORDARONE [Suspect]
     Active Substance: AMIODARONE HYDROCHLORIDE
     Indication: SUPRAVENTRICULAR TACHYCARDIA
     Dosage: 200 MG, DAILY
     Route: 048
     Dates: start: 2013, end: 20150117

REACTIONS (4)
  - Cardiopulmonary failure [Fatal]
  - Cardiac failure [Unknown]
  - Interstitial lung disease [Recovering/Resolving]
  - Chronic kidney disease [Unknown]

NARRATIVE: CASE EVENT DATE: 201303
